FAERS Safety Report 4722061-2 (Version None)
Quarter: 2005Q3

REPORT INFORMATION
  Report Type: 
  Country: None (occurrence: None)
  Receive Date: 20050722
  Receipt Date: 20050712
  Transmission Date: 20060218
  Serious: Yes (Other)
  Sender: FDA-Public Use
  Company Number: ES-ROCHE-410427

PATIENT
  Age: 54 Year
  Sex: Male
  Weight: 74 kg

DRUGS (2)
  1. PEGASYS [Suspect]
     Route: 065
     Dates: start: 20050223, end: 20050415
  2. REBETOL [Suspect]
     Route: 048
     Dates: start: 20050223, end: 20050415

REACTIONS (5)
  - BRONCHITIS [None]
  - COUGH [None]
  - PAIN [None]
  - PYREXIA [None]
  - TUBERCULIN TEST POSITIVE [None]
